FAERS Safety Report 17826256 (Version 3)
Quarter: 2020Q2

REPORT INFORMATION
  Report Type: Report from Study
  Country: US (occurrence: US)
  Receive Date: 20200526
  Receipt Date: 20200625
  Transmission Date: 20200714
  Serious: Yes (Life-Threatening, Congenital Anomaly, Other)
  Sender: FDA-Public Use
  Company Number: US-SA-2020SA102565

PATIENT

DRUGS (19)
  1. ACETAMINOPHEN AND CODEINE [Concomitant]
     Active Substance: ACETAMINOPHEN\CODEINE PHOSPHATE
     Indication: PRODUCT USED FOR UNKNOWN INDICATION
  2. METOPROLOL SUCCINATE. [Concomitant]
     Active Substance: METOPROLOL SUCCINATE
     Indication: HYPERTENSION
     Dosage: 25 MG, BID
     Route: 048
     Dates: start: 20200412
  3. KEFLEX [Concomitant]
     Active Substance: CEPHALEXIN
     Indication: PNEUMONIA
     Dosage: 500 MG, BID
     Route: 042
     Dates: start: 20200416, end: 20200419
  4. HEPARIN [Concomitant]
     Active Substance: HEPARIN SODIUM
     Indication: EMBOLISM VENOUS
     Dosage: 8 U/KG/HR CONTINUOUS INFUSION
     Route: 042
     Dates: start: 20200402, end: 20200408
  5. HEPARIN [Concomitant]
     Active Substance: HEPARIN SODIUM
     Indication: EMBOLISM VENOUS
     Dosage: 5000 IU, Q8H
     Dates: start: 20200411, end: 20200416
  6. SARILUMAB [Suspect]
     Active Substance: SARILUMAB
     Indication: COVID-19
     Dosage: 400 MG SINGLE
     Route: 042
     Dates: start: 20200329, end: 20200329
  7. DIGOXIN. [Concomitant]
     Active Substance: DIGOXIN
     Indication: PRODUCT USED FOR UNKNOWN INDICATION
  8. WARFARIN [Concomitant]
     Active Substance: WARFARIN
     Indication: PRODUCT USED FOR UNKNOWN INDICATION
  9. AZITHROMYCIN ANHYDROUS. [Concomitant]
     Active Substance: AZITHROMYCIN ANHYDROUS
     Indication: COVID-19
     Dosage: 500 MG, TIMES ONE DOSE
     Route: 042
     Dates: start: 20200327, end: 20200327
  10. AZITHROMYCIN ANHYDROUS. [Concomitant]
     Active Substance: AZITHROMYCIN ANHYDROUS
     Dosage: 250 MG, BID
     Dates: start: 20200328, end: 20200331
  11. MAXIPIME [Concomitant]
     Active Substance: CEFEPIME HYDROCHLORIDE
     Indication: PNEUMONIA
     Dosage: 1 G, Q12 H
     Route: 042
     Dates: start: 20200329, end: 20200401
  12. CEFEPIME [Concomitant]
     Active Substance: CEFEPIME HYDROCHLORIDE
     Indication: PNEUMONIA
     Dosage: 2 G, Q12H
     Route: 042
     Dates: start: 20200327, end: 20200329
  13. CEFAZOLIN [Concomitant]
     Active Substance: CEFAZOLIN
     Indication: PNEUMONIA
     Dosage: 6 G, QD
     Dates: start: 20200422, end: 20200428
  14. HYDROXYCHLOROQUINE [Concomitant]
     Active Substance: HYDROXYCHLOROQUINE
     Indication: COVID-19
     Dosage: 400 MG, BID
     Route: 048
     Dates: start: 20200327, end: 20200327
  15. HYDROXYCHLOROQUINE [Concomitant]
     Active Substance: HYDROXYCHLOROQUINE
     Dosage: 200 MG, BID
     Route: 048
     Dates: start: 20200328, end: 20200406
  16. HEPARIN [Concomitant]
     Active Substance: HEPARIN SODIUM
     Dosage: 15 U/KG/HR CONTINOUS INFUSION
     Dates: start: 20200416
  17. PROTONIX [OMEPRAZOLE] [Concomitant]
     Active Substance: OMEPRAZOLE
     Indication: GASTROINTESTINAL HAEMORRHAGE
     Dosage: 40 MG, QD
     Route: 042
     Dates: start: 20200408
  18. SARILUMAB [Suspect]
     Active Substance: SARILUMAB
     Dosage: 400 MG, SINGLE
     Route: 042
     Dates: start: 20200423, end: 20200423
  19. VANCOMYCIN [Concomitant]
     Active Substance: VANCOMYCIN
     Indication: PNEUMONIA
     Dosage: 2500 MG, TIMES ONE DOSE
     Route: 042
     Dates: start: 20200327, end: 20200327

REACTIONS (7)
  - Hypernatraemia [Recovered/Resolved]
  - Staphylococcal infection [Recovered/Resolved]
  - Hypokalaemia [Recovered/Resolved]
  - Neurological symptom [Recovered/Resolved]
  - Gastrointestinal haemorrhage [Recovered/Resolved]
  - Coronavirus infection [Recovered/Resolved with Sequelae]
  - Pneumonia bacterial [Unknown]

NARRATIVE: CASE EVENT DATE: 20200408
